FAERS Safety Report 8195203-7 (Version None)
Quarter: 2012Q1

REPORT INFORMATION
  Report Type: 
  Country: None (occurrence: None)
  Receive Date: 20120308
  Receipt Date: 20111202
  Transmission Date: 20120608
  Serious: No
  Sender: FDA-Public Use
  Company Number: US-GLAXOSMITHKLINE-A0956376A

PATIENT
  Age: 29 Year
  Sex: Male

DRUGS (1)
  1. NICORETTE (MINT) [Suspect]
     Indication: EX-TOBACCO USER
     Dates: start: 20111024, end: 20111024

REACTIONS (4)
  - NAUSEA [None]
  - ASTHENIA [None]
  - DIZZINESS [None]
  - MALAISE [None]
